FAERS Safety Report 25345891 (Version 1)
Quarter: 2025Q2

REPORT INFORMATION
  Report Type: Spontaneous
  Country: JP (occurrence: JP)
  Receive Date: 20250522
  Receipt Date: 20250522
  Transmission Date: 20250717
  Serious: Yes (Hospitalization, Other)
  Sender: JOHNSON AND JOHNSON
  Company Number: JP-JNJFOC-20250524246

PATIENT
  Age: 32 Year
  Sex: Male

DRUGS (38)
  1. OPSUMIT [Suspect]
     Active Substance: MACITENTAN
     Indication: Pulmonary arterial hypertension
     Dosage: 10 MG, QD
     Route: 048
     Dates: start: 20160530
  2. UPTRAVI [Suspect]
     Active Substance: SELEXIPAG
     Indication: Pulmonary arterial hypertension
     Dosage: 0.2 MG, QD
     Route: 048
     Dates: start: 20171017, end: 2017
  3. UPTRAVI [Suspect]
     Active Substance: SELEXIPAG
     Dosage: 0.8 MG, BID
     Route: 048
     Dates: start: 2017, end: 2017
  4. UPTRAVI [Suspect]
     Active Substance: SELEXIPAG
     Dosage: 1 MG, BID
     Route: 048
     Dates: start: 20171117
  5. VANCOMYCIN HYDROCHLORIDE [Suspect]
     Active Substance: VANCOMYCIN HYDROCHLORIDE
     Indication: Device related infection
     Route: 042
     Dates: start: 20190326, end: 20190403
  6. ZYVOX [Suspect]
     Active Substance: LINEZOLID
     Indication: Device related infection
     Route: 042
     Dates: start: 20190404, end: 20190404
  7. FLOLAN [Suspect]
     Active Substance: EPOPROSTENOL SODIUM
     Indication: Pulmonary arterial hypertension
     Dosage: 3.1ML/HR, 42 NG/KG, PER MIN
     Route: 042
     Dates: start: 20161228, end: 20171116
  8. FLOLAN [Suspect]
     Active Substance: EPOPROSTENOL SODIUM
     Dosage: 38 NG/KG, PER MIN
     Route: 042
     Dates: start: 20160530, end: 20160530
  9. FLOLAN [Suspect]
     Active Substance: EPOPROSTENOL SODIUM
     Dosage: 39-40 NG/KG, PER MIN
     Route: 042
     Dates: start: 20160531, end: 20160707
  10. FLOLAN [Suspect]
     Active Substance: EPOPROSTENOL SODIUM
     Dosage: 40 NG/KG, PER MIN
     Route: 042
     Dates: start: 20160531, end: 20160707
  11. FLOLAN [Suspect]
     Active Substance: EPOPROSTENOL SODIUM
     Dosage: 3.0ML/HR, 41 NG/KG, PER MIN
     Route: 042
     Dates: start: 20160708, end: 20160808
  12. FLOLAN [Suspect]
     Active Substance: EPOPROSTENOL SODIUM
     Dosage: 3.1ML/HR, 42 NG/KG, PER MIN
     Route: 042
     Dates: start: 20160809, end: 20161106
  13. FLOLAN [Suspect]
     Active Substance: EPOPROSTENOL SODIUM
     Dosage: 3.2ML/HR, 43-44 NG/KG, PER MIN
     Route: 042
     Dates: start: 20161108, end: 20161227
  14. FLOLAN [Suspect]
     Active Substance: EPOPROSTENOL SODIUM
     Dosage: 44 NG/KG, PER MIN
     Route: 042
     Dates: start: 20161108, end: 20161227
  15. FLOLAN [Suspect]
     Active Substance: EPOPROSTENOL SODIUM
     Dosage: 2.9ML/HR, 39.9 NG/KG, PER MIN
     Route: 042
     Dates: start: 20171117
  16. PROBIOTICS NOS [Concomitant]
     Active Substance: PROBIOTICS NOS
     Indication: Prophylaxis
     Route: 048
     Dates: start: 20181207, end: 20181213
  17. BIFIDOBACTERIUM SPP. [Concomitant]
     Active Substance: BIFIDOBACTERIUM SPP.
     Indication: Diarrhoea
     Route: 048
     Dates: start: 20160530
  18. BIFIDOBACTERIUM SPP. [Concomitant]
     Active Substance: BIFIDOBACTERIUM SPP.
     Route: 048
     Dates: start: 20160530
  19. FUROSEMIDE [Concomitant]
     Active Substance: FUROSEMIDE
     Indication: Right ventricular failure
     Route: 048
     Dates: start: 20160530, end: 20160904
  20. FUROSEMIDE [Concomitant]
     Active Substance: FUROSEMIDE
     Route: 048
     Dates: start: 20160905
  21. EPLERENONE [Concomitant]
     Active Substance: EPLERENONE
     Indication: Right ventricular failure
     Route: 048
     Dates: start: 20160530
  22. EPLERENONE [Concomitant]
     Active Substance: EPLERENONE
     Route: 048
     Dates: start: 20160905
  23. FEBUXOSTAT [Concomitant]
     Active Substance: FEBUXOSTAT
     Indication: Gout
     Route: 048
     Dates: start: 20160530
  24. FEBUXOSTAT [Concomitant]
     Active Substance: FEBUXOSTAT
     Route: 048
  25. LOPEMIN [Concomitant]
     Indication: Diarrhoea
     Route: 048
     Dates: start: 20160530, end: 20170511
  26. LOPEMIN [Concomitant]
     Route: 048
     Dates: start: 20170512, end: 20171130
  27. LOPEMIN [Concomitant]
     Route: 048
     Dates: start: 20171201
  28. NAUZELIN [Concomitant]
     Active Substance: DOMPERIDONE
     Indication: Nausea
     Route: 048
     Dates: start: 20160530, end: 20160707
  29. NAUZELIN [Concomitant]
     Active Substance: DOMPERIDONE
     Route: 048
     Dates: start: 20161107, end: 20170309
  30. LEVOFLOXACIN [Concomitant]
     Active Substance: LEVOFLOXACIN
     Indication: Dermatitis contact
     Route: 048
     Dates: start: 20160615
  31. ADCIRCA [Concomitant]
     Active Substance: TADALAFIL
     Indication: Pulmonary arterial hypertension
     Route: 048
     Dates: start: 20160530
  32. VALPROATE SODIUM [Concomitant]
     Active Substance: VALPROATE SODIUM
     Indication: Epilepsy
     Route: 048
  33. LEVETIRACETAM [Concomitant]
     Active Substance: LEVETIRACETAM
     Indication: Epilepsy
     Route: 048
  34. LEVETIRACETAM [Concomitant]
     Active Substance: LEVETIRACETAM
     Route: 048
  35. LEVETIRACETAM [Concomitant]
     Active Substance: LEVETIRACETAM
     Route: 048
  36. DIETARY SUPPLEMENT\PROBIOTICS [Concomitant]
     Active Substance: DIETARY SUPPLEMENT\PROBIOTICS NOS
     Indication: Prophylaxis
     Route: 048
     Dates: start: 20180724, end: 20180730
  37. DIETARY SUPPLEMENT\PROBIOTICS [Concomitant]
     Active Substance: DIETARY SUPPLEMENT\PROBIOTICS NOS
     Route: 048
     Dates: start: 20190122, end: 20190128
  38. NEXIUM [Concomitant]
     Active Substance: ESOMEPRAZOLE MAGNESIUM
     Indication: Prophylaxis
     Route: 048
     Dates: start: 20180731, end: 20181113

REACTIONS (12)
  - Pneumonia bacterial [Recovered/Resolved]
  - Hyperthyroidism [Recovering/Resolving]
  - Device related infection [Recovered/Resolved]
  - Deafness [Recovered/Resolved]
  - Headache [Recovering/Resolving]
  - Pain in extremity [Recovered/Resolved]
  - Thyroiditis [Recovered/Resolved]
  - Oropharyngeal pain [Recovered/Resolved]
  - Nasopharyngitis [Recovered/Resolved]
  - Drug hypersensitivity [Recovered/Resolved]
  - Tinnitus [Recovered/Resolved]
  - Concomitant disease aggravated [Recovered/Resolved]

NARRATIVE: CASE EVENT DATE: 20170512
